FAERS Safety Report 4584146-3 (Version None)
Quarter: 2005Q1

REPORT INFORMATION
  Report Type: 
  Country: None (occurrence: None)
  Receive Date: 20050216
  Receipt Date: 20050113
  Transmission Date: 20050727
  Serious: Yes (Other)
  Sender: FDA-Public Use
  Company Number: PHBS2005JP00929

PATIENT
  Age: 60 Year
  Sex: Male

DRUGS (1)
  1. GLEEVEC [Suspect]
     Indication: GASTROINTESTINAL STROMAL TUMOUR
     Dosage: 400 MG/D
     Route: 048

REACTIONS (18)
  - ABASIA [None]
  - ARTHRALGIA [None]
  - BONE PAIN [None]
  - DIARRHOEA [None]
  - DRY SKIN [None]
  - ERYTHEMA [None]
  - INGROWING NAIL [None]
  - PAIN [None]
  - PALMAR-PLANTAR ERYTHRODYSAESTHESIA SYNDROME [None]
  - PYREXIA [None]
  - RASH [None]
  - SKIN CHAPPED [None]
  - SKIN HAEMORRHAGE [None]
  - SKIN NECROSIS [None]
  - SKIN ULCER [None]
  - SWELLING [None]
  - WOUND INFECTION [None]
  - WOUND SECRETION [None]
